FAERS Safety Report 21321239 (Version 1)
Quarter: 2022Q3

REPORT INFORMATION
  Report Type: Spontaneous
  Country: US (occurrence: US)
  Receive Date: 20220912
  Receipt Date: 20220912
  Transmission Date: 20221026
  Serious: No
  Sender: FDA-Public Use
  Company Number: US-BIOVITRUM-2022US10260

PATIENT
  Sex: Male

DRUGS (1)
  1. KINERET [Suspect]
     Active Substance: ANAKINRA
     Indication: Familial amyloidosis
     Dates: start: 201904

REACTIONS (3)
  - Asthma [Unknown]
  - Hypersensitivity [Unknown]
  - Off label use [Unknown]
